FAERS Safety Report 7563803-0 (Version None)
Quarter: 2011Q2

REPORT INFORMATION
  Report Type: 
  Country: None (occurrence: None)
  Receive Date: 20110622
  Receipt Date: 20110610
  Transmission Date: 20111010
  Serious: Yes (Hospitalization)
  Sender: FDA-Public Use
  Company Number: BE-CELGENEUS-013-C5013-10061424

PATIENT
  Sex: Male
  Weight: 71 kg

DRUGS (4)
  1. VELCADE [Suspect]
     Indication: MULTIPLE MYELOMA
     Route: 050
     Dates: start: 20100427, end: 20100610
  2. ASPIRIN [Concomitant]
     Dosage: {=100MG
     Route: 065
  3. LENALIDOMIDE [Suspect]
     Indication: MULTIPLE MYELOMA
     Dosage: 5 MILLIGRAM
     Route: 048
     Dates: start: 20100427, end: 20100610
  4. PREDNISONE [Suspect]
     Indication: MULTIPLE MYELOMA
     Dosage: 230400 MILLIGRAM
     Route: 048

REACTIONS (1)
  - FAECALOMA [None]
